FAERS Safety Report 13705082 (Version 1)
Quarter: 2017Q2

REPORT INFORMATION
  Report Type: Report from Study
  Country: None (occurrence: US)
  Receive Date: 20170630
  Receipt Date: 20170630
  Transmission Date: 20170830
  Serious: Yes (Other)
  Sender: FDA-Public Use
  Company Number: US-ABBVIE-17K-163-1948358-00

PATIENT
  Sex: Female

DRUGS (1)
  1. HUMIRA [Suspect]
     Active Substance: ADALIMUMAB
     Indication: CROHN^S DISEASE
     Route: 058

REACTIONS (6)
  - Abdominal pain [Unknown]
  - Post-traumatic pain [Recovering/Resolving]
  - Fall [Unknown]
  - Foot fracture [Unknown]
  - Bacterial infection [Unknown]
  - Limb injury [Recovering/Resolving]
